FAERS Safety Report 7170059-X (Version None)
Quarter: 2010Q4

REPORT INFORMATION
  Report Type: 
  Country: None (occurrence: None)
  Receive Date: 20101217
  Receipt Date: 20101129
  Transmission Date: 20110411
  Serious: Yes (Other)
  Sender: FDA-Public Use
  Company Number: FR-PFIZER INC-2010158463

PATIENT
  Sex: Male

DRUGS (1)
  1. LYRICA [Suspect]
     Indication: INSOMNIA
     Dosage: 150 MG, 1X/DAY

REACTIONS (1)
  - ARRHYTHMIA [None]
